FAERS Safety Report 7913402-3 (Version None)
Quarter: 2011Q4

REPORT INFORMATION
  Report Type: 
  Country: None (occurrence: None)
  Receive Date: 20111115
  Receipt Date: 20111108
  Transmission Date: 20120403
  Serious: Yes (Other)
  Sender: FDA-Public Use
  Company Number: BR-BIOGENIDEC-2011BI002133

PATIENT
  Age: 32 Year
  Sex: Female
  Weight: 96 kg

DRUGS (2)
  1. FOLIC ACID [Concomitant]
     Indication: PREGNANCY
     Dates: start: 20110118
  2. AVONEX [Suspect]
     Indication: PRODUCT USED FOR UNKNOWN INDICATION
     Route: 030
     Dates: start: 20080201, end: 20110106

REACTIONS (1)
  - CAESAREAN SECTION [None]
